FAERS Safety Report 5244767-1 (Version None)
Quarter: 2007Q1

REPORT INFORMATION
  Report Type: 
  Country: None (occurrence: None)
  Receive Date: 20061201
  Receipt Date: 20060812
  Transmission Date: 20070707
  Serious: No
  Sender: FDA-Public Use
  Company Number: 2006PV019318

PATIENT
  Age: 55 Year
  Sex: Female
  Weight: 87.0906 kg

DRUGS (2)
  1. BYETTA [Suspect]
     Indication: DIABETES MELLITUS NON-INSULIN-DEPENDENT
     Dosage: 5 MCG;BID;SC
     Route: 058
     Dates: start: 20060722
  2. METFORMIN [Concomitant]

REACTIONS (3)
  - BACTERIAL INFECTION [None]
  - COUGH [None]
  - NASOPHARYNGITIS [None]
